FAERS Safety Report 5359599-3 (Version None)
Quarter: 2007Q2

REPORT INFORMATION
  Report Type: 
  Country: None (occurrence: None)
  Receive Date: 20070615
  Receipt Date: 20070611
  Transmission Date: 20071010
  Serious: Yes (Other)
  Sender: FDA-Public Use
  Company Number: GB-ALLERGAN-0706135US

PATIENT
  Sex: Female

DRUGS (2)
  1. TIMOLOL MALEATE SOL UNSPECIFID [Suspect]
     Indication: INTRAOCULAR PRESSURE INCREASED
     Dates: start: 20030101
  2. DORZOLAMIDE [Suspect]
     Indication: INTRAOCULAR PRESSURE INCREASED
     Dates: start: 20030101

REACTIONS (4)
  - CHOROIDAL DETACHMENT [None]
  - CONJUNCTIVAL BLEB [None]
  - HYPOTONY OF EYE [None]
  - VISUAL ACUITY REDUCED [None]
